FAERS Safety Report 9866841 (Version 1)
Quarter: 2014Q1

REPORT INFORMATION
  Report Type: Spontaneous
  Country: US (occurrence: None)
  Receive Date: 20140203
  Receipt Date: 20140203
  Transmission Date: 20141002
  Serious: Yes (Life-Threatening, Hospitalization, Other)
  Sender: FDA-Public Use
  Company Number: None

PATIENT
  Age: 66 Year
  Sex: Male
  Weight: 99.79 kg

DRUGS (1)
  1. BENICAR [Suspect]
     Indication: HYPERTENSION
     Dosage: 1 PILL PER DAY ONCE DAILY TAKEN BY MOUTH
     Route: 048
     Dates: start: 20060630, end: 20130630

REACTIONS (11)
  - Weight decreased [None]
  - Coeliac disease [None]
  - Dehydration [None]
  - Blood pressure increased [None]
  - Impaired work ability [None]
  - Nephrolithiasis [None]
  - Gout [None]
  - Transient ischaemic attack [None]
  - Cerebrovascular accident [None]
  - Metabolic disorder [None]
  - Tropical sprue [None]
